FAERS Safety Report 5115806-3 (Version None)
Quarter: 2006Q3

REPORT INFORMATION
  Report Type: 
  Country: None (occurrence: None)
  Receive Date: 20060927
  Receipt Date: 20060908
  Transmission Date: 20061208
  Serious: Yes (Disabling)
  Sender: FDA-Public Use
  Company Number: 2006AP04248

PATIENT
  Age: 23035 Day
  Sex: Male
  Weight: 53 kg

DRUGS (7)
  1. ARIMIDEX [Suspect]
     Indication: BREAST CANCER
     Route: 048
     Dates: start: 20050726, end: 20060907
  2. XELODA [Suspect]
     Indication: BREAST CANCER
     Route: 048
     Dates: start: 20060420, end: 20060907
  3. ZYLORIC [Concomitant]
     Route: 048
     Dates: end: 20060908
  4. BEZATOL SR [Concomitant]
     Route: 048
     Dates: end: 20060908
  5. EPIRUBICIN [Concomitant]
     Indication: BREAST CANCER
     Dates: start: 20050714, end: 20051124
  6. ENDOXAN [Concomitant]
     Indication: BREAST CANCER
     Dates: start: 20050714, end: 20051124
  7. PACLITAXEL [Concomitant]
     Indication: BREAST CANCER
     Dates: start: 20051208, end: 20060316

REACTIONS (5)
  - HYPERAMYLASAEMIA [None]
  - HYPERGLYCAEMIA [None]
  - HYPERLIPIDAEMIA [None]
  - PANCREATIC DISORDER [None]
  - RASH [None]
